FAERS Safety Report 20811207 (Version 2)
Quarter: 2022Q4

REPORT INFORMATION
  Report Type: Other
  Country: DE (occurrence: None)
  Receive Date: 20220510
  Receipt Date: 20221017
  Transmission Date: 20230113
  Serious: No
  Sender: FDA-Public Use
  Company Number: DE-ROCHE-2806118

PATIENT
  Age: 42 Year
  Sex: Male

DRUGS (5)
  1. OCREVUS [Suspect]
     Active Substance: OCRELIZUMAB
     Indication: Primary progressive multiple sclerosis
     Route: 042
     Dates: start: 20190701
  2. DALFAMPRIDINE [Concomitant]
     Active Substance: DALFAMPRIDINE
  3. BACLOFEN [Concomitant]
     Active Substance: BACLOFEN
  4. CHOLECALCIFEROL [Concomitant]
     Active Substance: CHOLECALCIFEROL
     Dosage: 20000 IU
  5. BIOTIN [Concomitant]
     Active Substance: BIOTIN

REACTIONS (9)
  - Gait disturbance [Not Recovered/Not Resolved]
  - Skin laceration [Recovered/Resolved]
  - Fall [Unknown]
  - Nasopharyngitis [Recovered/Resolved]
  - COVID-19 [Not Recovered/Not Resolved]
  - Dyspnoea [Not Recovered/Not Resolved]
  - Cough [Recovering/Resolving]
  - Fatigue [Recovered/Resolved]
  - Dysarthria [Unknown]

NARRATIVE: CASE EVENT DATE: 20190701
